FAERS Safety Report 11222494 (Version 1)
Quarter: 2015Q2

REPORT INFORMATION
  Report Type: Other
  Country: None (occurrence: PT)
  Receive Date: 20150626
  Receipt Date: 20150626
  Transmission Date: 20150821
  Serious: Yes (Other)
  Sender: FDA-Public Use
  Company Number: PT-MERCK KGAA-1040205

PATIENT

DRUGS (1)
  1. NOVOTHYROX [Suspect]
     Active Substance: LEVOTHYROXINE SODIUM

REACTIONS (6)
  - Colitis microscopic [None]
  - Drug abuse [None]
  - Acute prerenal failure [None]
  - Pernicious anaemia [None]
  - Off label use [None]
  - Drug intolerance [None]
